FAERS Safety Report 9295810 (Version 1)
Quarter: 2013Q2

REPORT INFORMATION
  Report Type: Spontaneous
  Country: US (occurrence: US)
  Receive Date: 20130517
  Receipt Date: 20130517
  Transmission Date: 20140414
  Serious: Yes (Other)
  Sender: FDA-Public Use
  Company Number: US-JNJFOC-20130506434

PATIENT
  Age: 57 Year
  Sex: Female
  Weight: 57.61 kg

DRUGS (6)
  1. REMICADE [Suspect]
     Indication: RHEUMATOID ARTHRITIS
     Route: 042
     Dates: start: 2013
  2. FOLIC ACID [Concomitant]
     Indication: ARTHRITIS
     Route: 048
     Dates: start: 2011
  3. VERAPAMIL [Concomitant]
     Indication: CARDIAC VALVE DISEASE
     Route: 048
     Dates: start: 1993
  4. CYMBALTA [Concomitant]
     Indication: PAIN
     Route: 048
     Dates: start: 2011
  5. VITAMIN D [Concomitant]
     Route: 048
     Dates: start: 2011
  6. FISH OIL [Concomitant]
     Route: 048
     Dates: start: 2011

REACTIONS (3)
  - Pneumonia [Recovered/Resolved]
  - Adverse drug reaction [Not Recovered/Not Resolved]
  - Muscle strain [Not Recovered/Not Resolved]
